FAERS Safety Report 7239338-1 (Version None)
Quarter: 2011Q1

REPORT INFORMATION
  Report Type: 
  Country: None (occurrence: None)
  Receive Date: 20110121
  Receipt Date: 20110118
  Transmission Date: 20110831
  Serious: Yes (Other)
  Sender: FDA-Public Use
  Company Number: BR-PFIZER INC-2010136765

PATIENT
  Age: 37 Year
  Sex: Female
  Weight: 71 kg

DRUGS (6)
  1. CLONAZEPAM [Concomitant]
     Indication: INSOMNIA
  2. CLONAZEPAM [Concomitant]
     Indication: SLEEP DISORDER
     Dosage: 1 MG, UNK
     Dates: start: 20080101
  3. CARBAMAZEPINE [Concomitant]
     Indication: BIPOLAR DISORDER
     Dosage: UNK MG, 1X/DAY
     Dates: start: 20080101
  4. CHAMPIX [Suspect]
     Indication: TOBACCO ABUSE
     Dosage: UNK
     Route: 048
     Dates: start: 20081020, end: 20080101
  5. CHAMPIX [Suspect]
     Dosage: 1 MG, 2X/DAY
     Route: 048
     Dates: start: 20101001
  6. CHAMPIX [Suspect]
     Dosage: UNK
     Route: 048
     Dates: start: 20101020, end: 20100101

REACTIONS (6)
  - MENTAL DISORDER [None]
  - DEPRESSION [None]
  - SUICIDAL IDEATION [None]
  - DEPRESSED MOOD [None]
  - FEELING OF DESPAIR [None]
  - PANIC ATTACK [None]
